FAERS Safety Report 16734233 (Version 2)
Quarter: 2019Q4

REPORT INFORMATION
  Report Type: Spontaneous
  Country: BR (occurrence: BR)
  Receive Date: 20190823
  Receipt Date: 20191119
  Transmission Date: 20200122
  Serious: Yes (Hospitalization, Other)
  Sender: FDA-Public Use
  Company Number: BR-ACTELION-A-CH2019-194697

PATIENT
  Age: 4 Year
  Sex: Female
  Weight: 23 kg

DRUGS (5)
  1. HYDROXYZINE [Concomitant]
     Active Substance: HYDROXYZINE HYDROCHLORIDE
     Dosage: UNK
     Dates: start: 201904
  2. BOSENTAN. [Suspect]
     Active Substance: BOSENTAN
     Indication: PULMONARY HYPERTENSION
     Dosage: 31.25 MG, BID
     Route: 048
     Dates: start: 20190503
  3. BOSENTAN. [Suspect]
     Active Substance: BOSENTAN
     Dosage: 62.5 MG, BID
     Route: 048
     Dates: start: 20190610
  4. SILDENAFIL. [Concomitant]
     Active Substance: SILDENAFIL
     Indication: PULMONARY HYPERTENSION
     Dosage: 10 MG, QD
     Dates: start: 20190410
  5. DIGOXIN. [Concomitant]
     Active Substance: DIGOXIN
     Dosage: UNK
     Dates: start: 20190603

REACTIONS (15)
  - Epistaxis [Unknown]
  - Fatigue [Recovered/Resolved]
  - Brain natriuretic peptide increased [Recovered/Resolved]
  - Heart rate increased [Recovered/Resolved]
  - Anaemia [Unknown]
  - Transfusion [Recovered/Resolved]
  - Supraventricular extrasystoles [Unknown]
  - Platelet count decreased [Unknown]
  - Crying [Recovered/Resolved]
  - Syncope [Recovered/Resolved]
  - Dyspnoea [Unknown]
  - Iron deficiency [Unknown]
  - Haemoglobin decreased [Unknown]
  - Vascular cauterisation [Unknown]
  - Pallor [Recovered/Resolved]

NARRATIVE: CASE EVENT DATE: 201905
